FAERS Safety Report 4960193-4 (Version None)
Quarter: 2006Q1

REPORT INFORMATION
  Report Type: 
  Country: None (occurrence: None)
  Receive Date: 20060331
  Receipt Date: 20060322
  Transmission Date: 20060701
  Serious: Yes (Death)
  Sender: FDA-Public Use
  Company Number: ES-ABBOTT-06P-144-0328805-00

PATIENT
  Age: 50 Year
  Sex: Male

DRUGS (3)
  1. KALETRA [Suspect]
     Indication: HIV INFECTION
     Route: 048
     Dates: start: 20030515, end: 20050701
  2. ZIDOVUDINE [Concomitant]
     Indication: HIV INFECTION
     Dates: start: 20030515, end: 20050701
  3. LAMIVUDINE [Concomitant]
     Indication: HIV INFECTION
     Dates: start: 20030515, end: 20050701

REACTIONS (3)
  - COLITIS ULCERATIVE [None]
  - CROHN'S DISEASE [None]
  - ENTEROCOLITIS HAEMORRHAGIC [None]
